FAERS Safety Report 11199970 (Version 1)
Quarter: 2015Q2

REPORT INFORMATION
  Report Type: Spontaneous
  Country: US (occurrence: None)
  Receive Date: 20150617
  Receipt Date: 20150617
  Transmission Date: 20150821
  Serious: No
  Sender: FDA-Public Use
  Company Number: None

PATIENT
  Age: 47 Year
  Sex: Male
  Weight: 74.84 kg

DRUGS (2)
  1. ALIVE ENERGY SUPPLEMENT POWDER [Concomitant]
  2. HEADACHE RELIEF EXTRA STRENGTH [Suspect]
     Active Substance: ACETAMINOPHEN\ASPIRIN\CAFFEINE
     Indication: MIGRAINE
     Dosage: 2 PILLS
     Route: 048
     Dates: start: 20150101, end: 20150616

REACTIONS (5)
  - Asthenia [None]
  - Product quality issue [None]
  - Nausea [None]
  - Syncope [None]
  - Product substitution issue [None]

NARRATIVE: CASE EVENT DATE: 20150616
